FAERS Safety Report 5343611-1 (Version None)
Quarter: 2007Q2

REPORT INFORMATION
  Report Type: 
  Country: None (occurrence: None)
  Receive Date: 20070531
  Receipt Date: 20070517
  Transmission Date: 20071010
  Serious: Yes (Other)
  Sender: FDA-Public Use
  Company Number: 8024175

PATIENT
  Age: 40 Year
  Sex: Female

DRUGS (2)
  1. KEPPRA [Suspect]
     Dosage: 750 MG/D;
     Dates: start: 20070101
  2. EPILIM [Concomitant]

REACTIONS (6)
  - ALOPECIA [None]
  - ANOREXIA [None]
  - HAEMORRHAGE [None]
  - PLATELET COUNT DECREASED [None]
  - TREMOR [None]
  - WEIGHT DECREASED [None]
